FAERS Safety Report 14707500 (Version 1)
Quarter: 2018Q2

REPORT INFORMATION
  Report Type: Spontaneous
  Country: US (occurrence: US)
  Receive Date: 20180403
  Receipt Date: 20180403
  Transmission Date: 20180711
  Serious: No
  Sender: FDA-Public Use
  Company Number: US-LEO PHARMA-308165

PATIENT
  Sex: Female

DRUGS (2)
  1. PICATO [Suspect]
     Active Substance: INGENOL MEBUTATE
     Indication: ACTINIC KERATOSIS
     Dates: start: 20180324
  2. PICATO [Suspect]
     Active Substance: INGENOL MEBUTATE
     Indication: ACTINIC KERATOSIS

REACTIONS (3)
  - Application site erythema [Not Recovered/Not Resolved]
  - Application site swelling [Recovered/Resolved]
  - Application site vesicles [Not Recovered/Not Resolved]
